FAERS Safety Report 4912480-3 (Version None)
Quarter: 2006Q1

REPORT INFORMATION
  Report Type: 
  Country: None (occurrence: None)
  Receive Date: 20060215
  Receipt Date: 20050503
  Transmission Date: 20060701
  Serious: No
  Sender: FDA-Public Use
  Company Number: US-GLAXOSMITHKLINE-A0557101A

PATIENT
  Age: 47 Year
  Sex: Female

DRUGS (2)
  1. VALTREX [Suspect]
     Dosage: 500MG SINGLE DOSE
     Route: 048
     Dates: start: 20050502, end: 20050502
  2. NO CONCURRENT MEDICATION [Concomitant]

REACTIONS (1)
  - ASTHMA [None]
